FAERS Safety Report 18691958 (Version 1)
Quarter: 2021Q1

REPORT INFORMATION
  Report Type: Other
  Country: FR (occurrence: FR)
  Receive Date: 20210102
  Receipt Date: 20210102
  Transmission Date: 20210419
  Serious: Yes (Hospitalization, Congenital Anomaly)
  Sender: FDA-Public Use
  Company Number: FR-CADILA HEALTHCARE LIMITED-FR-ZYDUS-060314

PATIENT

DRUGS (4)
  1. ASPIRINE [Suspect]
     Active Substance: ASPIRIN
     Indication: MYOCARDIAL INFARCTION
     Dosage: 100 MILLIGRAM, QD
     Route: 064
     Dates: end: 20190723
  2. ATORVASTATIN [Suspect]
     Active Substance: ATORVASTATIN
     Indication: HYPERLIPIDAEMIA
     Dosage: 80 MILLIGRAM, QD
     Route: 064
     Dates: end: 20190712
  3. BISOCE [Suspect]
     Active Substance: BISOPROLOL
     Indication: MYOCARDIAL INFARCTION
     Dosage: 2.5 MILLIGRAM, QD
     Route: 064
     Dates: end: 20190723
  4. PERINDOPRIL [Suspect]
     Active Substance: PERINDOPRIL
     Indication: MYOCARDIAL INFARCTION
     Dosage: 4 MILLIGRAM, QD
     Route: 064
     Dates: end: 20190712

REACTIONS (2)
  - Hypertelorism of orbit [Not Recovered/Not Resolved]
  - Dysmorphism [Not Recovered/Not Resolved]

NARRATIVE: CASE EVENT DATE: 201907
